FAERS Safety Report 7090977-0 (Version None)
Quarter: 2010Q4

REPORT INFORMATION
  Report Type: 
  Country: None (occurrence: None)
  Receive Date: 20101105
  Receipt Date: 20101105
  Transmission Date: 20110411
  Serious: Yes (Hospitalization)
  Sender: FDA-Public Use
  Company Number: None

PATIENT
  Age: 40 Year
  Sex: Male
  Weight: 190 kg

DRUGS (1)
  1. LARIAM [Suspect]
     Dosage: ONE A WEEK PO
     Route: 048
     Dates: start: 20051009, end: 20060511

REACTIONS (2)
  - COMPLETED SUICIDE [None]
  - PRODUCT QUALITY ISSUE [None]
